FAERS Safety Report 25670871 (Version 1)
Quarter: 2025Q3

REPORT INFORMATION
  Report Type: Spontaneous
  Country: US (occurrence: US)
  Receive Date: 20250812
  Receipt Date: 20250812
  Transmission Date: 20251021
  Serious: No
  Sender: MERCK SHARP & DOHME LLC
  Company Number: US-009507513-2312940

PATIENT
  Age: 25 Year
  Sex: Male

DRUGS (3)
  1. SITAGLIPTIN [Suspect]
     Active Substance: SITAGLIPTIN
     Indication: Cystic fibrosis related diabetes
     Route: 048
  2. INSULIN GLARGINE [Concomitant]
     Active Substance: INSULIN GLARGINE
     Indication: Cystic fibrosis related diabetes
  3. INSULIN ASPART [Concomitant]
     Active Substance: INSULIN ASPART
     Indication: Cystic fibrosis related diabetes

REACTIONS (1)
  - Product use in unapproved indication [Unknown]
